FAERS Safety Report 8089211-4 (Version None)
Quarter: 2012Q1

REPORT INFORMATION
  Report Type: 
  Country: None (occurrence: None)
  Receive Date: 20120128
  Receipt Date: 20110708
  Transmission Date: 20120608
  Serious: No
  Sender: FDA-Public Use
  Company Number: US-ABBOTT-11P-163-0837673-00

PATIENT
  Sex: Female
  Weight: 108.05 kg

DRUGS (2)
  1. FELODIPINE [Suspect]
     Indication: HYPERTENSION
     Dosage: DOSE RECENTLY INCREASED IN APR 2011
     Dates: end: 20110401
  2. HUMIRA [Suspect]
     Indication: CROHN'S DISEASE
     Route: 058
     Dates: start: 20110401

REACTIONS (7)
  - WEIGHT INCREASED [None]
  - JOINT SWELLING [None]
  - ANGIOEDEMA [None]
  - SWELLING [None]
  - FREQUENT BOWEL MOVEMENTS [None]
  - DYSPNOEA [None]
  - ARTHRALGIA [None]
